FAERS Safety Report 4994113-3 (Version None)
Quarter: 2006Q2

REPORT INFORMATION
  Report Type: 
  Country: None (occurrence: None)
  Receive Date: 20060505
  Receipt Date: 20060424
  Transmission Date: 20061013
  Serious: Yes (Other)
  Sender: FDA-Public Use
  Company Number: PHEH2006US05435

PATIENT
  Age: 70 Year
  Sex: Female

DRUGS (3)
  1. ZOMETA [Suspect]
     Indication: METASTASES TO BONE
     Dosage: 4 MG EVERY 4 WEEKS
  2. THALIDOMID [Concomitant]
  3. DECADRON [Concomitant]

REACTIONS (3)
  - EXOSTOSIS [None]
  - ORAL PAIN [None]
  - OSTEONECROSIS [None]
